FAERS Safety Report 4346327-3 (Version None)
Quarter: 2004Q1

REPORT INFORMATION
  Report Type: 
  Country: None (occurrence: None)
  Receive Date: 20040325
  Receipt Date: 20031215
  Transmission Date: 20041129
  Serious: No
  Sender: FDA-Public Use
  Company Number: USA031254653

PATIENT
  Age: 74 Year
  Sex: Female

DRUGS (3)
  1. FORTEO [Suspect]
     Indication: OSTEOPOROSIS
     Dosage: 20 UG/DAY
     Dates: start: 20031211
  2. EVISTA [Concomitant]
  3. FOSAMAX [Concomitant]

REACTIONS (3)
  - ABDOMINAL PAIN UPPER [None]
  - HEADACHE [None]
  - NAUSEA [None]
